FAERS Safety Report 18449262 (Version 2)
Quarter: 2020Q4

REPORT INFORMATION
  Report Type: Spontaneous
  Country: FI (occurrence: FI)
  Receive Date: 20201030
  Receipt Date: 20201030
  Transmission Date: 20210114
  Serious: Yes (Death)
  Sender: FDA-Public Use
  Company Number: FI-ROCHE-2702348

PATIENT
  Age: 82 Year
  Sex: Female

DRUGS (1)
  1. ALECENSA [Suspect]
     Active Substance: ALECTINIB HYDROCHLORIDE
     Indication: NON-SMALL CELL LUNG CANCER
     Route: 065
     Dates: start: 2020

REACTIONS (3)
  - Pneumonitis [Recovering/Resolving]
  - Diplopia [Unknown]
  - Death [Fatal]

NARRATIVE: CASE EVENT DATE: 202010
